FAERS Safety Report 23771937 (Version 1)
Quarter: 2024Q2

REPORT INFORMATION
  Report Type: Spontaneous
  Country: US (occurrence: US)
  Receive Date: 20240423
  Receipt Date: 20240423
  Transmission Date: 20240716
  Serious: No
  Sender: FDA-Public Use
  Company Number: US-JNJFOC-20240385672

PATIENT
  Age: 10 Year
  Sex: Male

DRUGS (1)
  1. ZYRTEC-D [Suspect]
     Active Substance: CETIRIZINE HYDROCHLORIDE\PSEUDOEPHEDRINE HYDROCHLORIDE
     Indication: Accidental exposure to product by child
     Route: 048
     Dates: start: 20240326, end: 20240326

REACTIONS (4)
  - Malaise [Recovering/Resolving]
  - Somnolence [Recovering/Resolving]
  - Asthenia [Recovering/Resolving]
  - Accidental exposure to product by child [Unknown]

NARRATIVE: CASE EVENT DATE: 20240326
